FAERS Safety Report 8091337-6 (Version None)
Quarter: 2012Q1

REPORT INFORMATION
  Report Type: 
  Country: None (occurrence: None)
  Receive Date: 20120131
  Receipt Date: 20120119
  Transmission Date: 20120608
  Serious: Yes (Hospitalization, Other)
  Sender: FDA-Public Use
  Company Number: CH-ELI_LILLY_AND_COMPANY-CH201201006539

PATIENT
  Age: 70 Year
  Sex: Male

DRUGS (9)
  1. ZYPREXA [Suspect]
     Indication: DEPRESSION
     Dosage: 2.5 MG, QD
     Route: 048
     Dates: start: 20110818, end: 20110821
  2. AMITRIPTYLINE HCL [Concomitant]
     Indication: DEPRESSION
     Dosage: 75 MG, UNK
     Route: 048
     Dates: start: 20110601
  3. ZYPREXA [Suspect]
     Dosage: 2.5 MG, QD
     Route: 048
     Dates: start: 20110917, end: 20110920
  4. ZYPREXA [Suspect]
     Dosage: 5 MG, QD
     Route: 048
     Dates: start: 20110822, end: 20110824
  5. ZYPREXA [Suspect]
     Dosage: 10 MG, QD
     Route: 048
     Dates: start: 20110825, end: 20110908
  6. LORAZEPAM [Concomitant]
     Dosage: 1.5 MG, UNK
     Route: 048
     Dates: start: 20110601, end: 20110825
  7. LORAZEPAM [Concomitant]
     Dosage: 1.5 MG, UNK
     Route: 048
     Dates: start: 20110923
  8. ZYPREXA [Suspect]
     Dosage: 5 MG, QD
     Route: 048
     Dates: start: 20110909, end: 20110916
  9. LORAZEPAM [Concomitant]
     Dosage: 3 MG, UNK
     Route: 048
     Dates: start: 20110826, end: 20110918

REACTIONS (6)
  - FALL [None]
  - AKATHISIA [None]
  - DYSPNOEA [None]
  - AGITATED DEPRESSION [None]
  - DELUSION [None]
  - DISSOCIATIVE FUGUE [None]
